FAERS Safety Report 18131325 (Version 1)
Quarter: 2020Q3

REPORT INFORMATION
  Report Type: Spontaneous
  Country: ES (occurrence: ES)
  Receive Date: 20200810
  Receipt Date: 20200810
  Transmission Date: 20201103
  Serious: Yes (Other)
  Sender: FDA-Public Use
  Company Number: ES-BAUSCH-BL-2020-022026

PATIENT
  Age: 72 Year
  Sex: Female

DRUGS (4)
  1. METFORMIN [Suspect]
     Active Substance: METFORMIN HYDROCHLORIDE
     Indication: TYPE 2 DIABETES MELLITUS
     Route: 065
  2. ENALAPRIL MALEATE AND HYDROCHLOROTHIAZIDE [Interacting]
     Active Substance: ENALAPRIL MALEATE\HYDROCHLOROTHIAZIDE
     Indication: HYPERTENSION
     Route: 065
  3. IBUPROFEN. [Interacting]
     Active Substance: IBUPROFEN
     Indication: PAIN
     Dosage: 600 MG, AS NEEDED, TO 4 SACHETS A DAY
     Route: 065
  4. GLICLAZIDE [Interacting]
     Active Substance: GLICLAZIDE
     Indication: TYPE 2 DIABETES MELLITUS
     Route: 065

REACTIONS (8)
  - Drug interaction [Unknown]
  - Tremor [Unknown]
  - Hypoglycaemia [Unknown]
  - Dizziness [Unknown]
  - Hyperhidrosis [Unknown]
  - Muscle spasms [Unknown]
  - Drug ineffective [Unknown]
  - Diarrhoea [Unknown]
